FAERS Safety Report 8197650-6 (Version None)
Quarter: 2012Q1

REPORT INFORMATION
  Report Type: 
  Country: None (occurrence: None)
  Receive Date: 20120309
  Receipt Date: 20120301
  Transmission Date: 20120608
  Serious: Yes (Hospitalization)
  Sender: FDA-Public Use
  Company Number: IN-SANOFI-AVENTIS-2012SA014263

PATIENT
  Age: 60 Year
  Sex: Male
  Weight: 72 kg

DRUGS (3)
  1. CISPLATIN [Suspect]
     Route: 042
     Dates: start: 20120213, end: 20120215
  2. DOCETAXEL [Suspect]
     Route: 042
     Dates: start: 20120213, end: 20120213
  3. FLUOROURACIL [Suspect]
     Route: 042
     Dates: start: 20120213, end: 20120215

REACTIONS (4)
  - DISORIENTATION [None]
  - CHEST PAIN [None]
  - DYSPNOEA [None]
  - HYPONATRAEMIA [None]
